FAERS Safety Report 6115648-6 (Version None)
Quarter: 2009Q1

REPORT INFORMATION
  Report Type: 
  Country: None (occurrence: None)
  Receive Date: 20090313
  Receipt Date: 20090309
  Transmission Date: 20090719
  Serious: Yes (Other)
  Sender: FDA-Public Use
  Company Number: US-JNJCH-2009006630

PATIENT
  Age: 56 Year
  Sex: Male
  Weight: 117 kg

DRUGS (1)
  1. VISINE EYE DROPS [Suspect]
     Indication: OCULAR HYPERAEMIA
     Dosage: TEXT:UNSPECIFIED
     Route: 047

REACTIONS (3)
  - HYPERSENSITIVITY [None]
  - VISION BLURRED [None]
  - VISUAL IMPAIRMENT [None]
